FAERS Safety Report 15815323 (Version 1)
Quarter: 2019Q1

REPORT INFORMATION
  Report Type: Spontaneous
  Country: US (occurrence: US)
  Receive Date: 20190112
  Receipt Date: 20190112
  Transmission Date: 20190417
  Serious: Yes (Other)
  Sender: FDA-Public Use
  Company Number: US-MACLEODS PHARMACEUTICALS US LTD-MAC2019019480

PATIENT

DRUGS (2)
  1. FAMCICLOVIR. [Suspect]
     Active Substance: FAMCICLOVIR
     Indication: HERPES ZOSTER
     Dosage: UNK
     Route: 065
  2. VALTREX [Suspect]
     Active Substance: VALACYCLOVIR HYDROCHLORIDE
     Indication: HERPES ZOSTER
     Dosage: UNK
     Route: 065

REACTIONS (2)
  - Product substitution issue [Unknown]
  - Drug ineffective [Unknown]
